FAERS Safety Report 12278352 (Version 4)
Quarter: 2016Q2

REPORT INFORMATION
  Report Type: Spontaneous
  Country: US (occurrence: US)
  Receive Date: 20160418
  Receipt Date: 20160523
  Transmission Date: 20160815
  Serious: Yes (Hospitalization)
  Sender: FDA-Public Use
  Company Number: US-PFIZER INC-2016209756

PATIENT
  Age: 26 Year
  Sex: Male

DRUGS (8)
  1. ZARONTIN [Suspect]
     Active Substance: ETHOSUXIMIDE
     Dosage: 1750 MG, DAILY
  2. ADVIL PM [Concomitant]
     Active Substance: DIPHENHYDRAMINE CITRATE\IBUPROFEN
     Indication: INSOMNIA
     Dosage: 1 DF, AS NEEDED (IBUPROFEN 200 MG AND DIPHENHYDRAMINE 38 MG)
     Route: 048
  3. MOBIC [Concomitant]
     Active Substance: MELOXICAM
     Dosage: 15 MG, DAILY (TAKE 1 TABLET) (TAKES AT 1 PM)
     Route: 048
  4. ZARONTIN [Suspect]
     Active Substance: ETHOSUXIMIDE
     Dosage: 2500 MG, 2X/DAY (3 CAPSULES TWICE DAILY AND 4 CAPS AT BEDTIME)
     Route: 048
     Dates: start: 20160502
  5. LEXAPRO [Concomitant]
     Active Substance: ESCITALOPRAM OXALATE
     Dosage: 10 MG, DAILY (TAKE 1 TABLET)
     Route: 048
  6. MELATONIN [Concomitant]
     Active Substance: MELATONIN
     Dosage: 10 MG, UNK
     Route: 048
  7. ZARONTIN [Suspect]
     Active Substance: ETHOSUXIMIDE
     Indication: SEIZURE
     Dosage: 750 MG, DAILY
     Route: 048
  8. LAMICTAL [Concomitant]
     Active Substance: LAMOTRIGINE
     Dosage: 200 MG, UNK (TAKE 3 TAB 0500, 3 TABS 1300, 3 TABS 2100 )

REACTIONS (3)
  - Drug level decreased [Unknown]
  - Drug effect incomplete [Unknown]
  - Overdose [Unknown]

NARRATIVE: CASE EVENT DATE: 2015
